FAERS Safety Report 9576447 (Version 1)
Quarter: 2013Q4

REPORT INFORMATION
  Report Type: Spontaneous
  Country: US (occurrence: US)
  Receive Date: 20131001
  Receipt Date: 20131001
  Transmission Date: 20140711
  Serious: Yes (Hospitalization)
  Sender: FDA-Public Use
  Company Number: US-AMGEN-USASP2013002953

PATIENT
  Age: 49 Year
  Sex: Male
  Weight: 30.84 kg

DRUGS (9)
  1. ENBREL [Suspect]
     Indication: RHEUMATOID ARTHRITIS
     Dosage: 50 MG, QWK
     Route: 058
  2. PRILOSEC                           /00661201/ [Concomitant]
     Dosage: 10 MG, UNK
  3. POTASSIUM CITRATE [Concomitant]
     Dosage: 540 MG, UNK
  4. TENORMIN [Concomitant]
     Dosage: 5 MG PER 10 ML, UNK
  5. ALLOPURINOL [Concomitant]
     Dosage: 100 MG, UNK
  6. PREDNISONE [Concomitant]
     Dosage: 5 MG, UNK
  7. IRON [Concomitant]
     Dosage: 50 MG, UNK
  8. COLACE [Concomitant]
     Dosage: 50 MG, UNK
  9. VITAMIN B COMPLEX [Concomitant]
     Dosage: UNK

REACTIONS (1)
  - Joint abscess [Unknown]
